FAERS Safety Report 5882881-8 (Version None)
Quarter: 2008Q3

REPORT INFORMATION
  Report Type: 
  Country: None (occurrence: None)
  Receive Date: 20080913
  Receipt Date: 20080820
  Transmission Date: 20090109
  Serious: No
  Sender: FDA-Public Use
  Company Number: US-ABBOTT-08P-163-0471842-00

PATIENT
  Sex: Male
  Weight: 63.56 kg

DRUGS (4)
  1. HUMIRA [Suspect]
     Indication: CROHN'S DISEASE
     Dosage: FOUR INJECTIONS
     Route: 050
     Dates: start: 20080701, end: 20080801
  2. HUMIRA [Suspect]
     Dosage: TWO INJECTIONS THREE WEEKS LATER
     Route: 050
     Dates: start: 20080801
  3. PREDNISONE TAB [Concomitant]
     Indication: CROHN'S DISEASE
     Dosage: WEANING DOWN 10 TO 20 EVERY DAY
     Route: 048
     Dates: start: 20080601
  4. HYOSCYAMINE [Concomitant]
     Indication: MUSCLE SPASMS
     Route: 048
     Dates: start: 20080701

REACTIONS (7)
  - ARTHRALGIA [None]
  - DYSPHAGIA [None]
  - INAPPROPRIATE SCHEDULE OF DRUG ADMINISTRATION [None]
  - OROPHARYNGEAL PAIN [None]
  - TONGUE DISCOLOURATION [None]
  - TONSILLAR HYPERTROPHY [None]
  - WEIGHT BEARING DIFFICULTY [None]
